FAERS Safety Report 24786041 (Version 2)
Quarter: 2025Q1

REPORT INFORMATION
  Report Type: Report from Study
  Country: CA (occurrence: CA)
  Receive Date: 20241229
  Receipt Date: 20250101
  Transmission Date: 20250409
  Serious: No
  Sender: ROCHE
  Company Number: CA-ROCHE-2406281

PATIENT
  Age: 42 Year
  Sex: Female

DRUGS (8)
  1. OCREVUS [Suspect]
     Active Substance: OCRELIZUMAB
     Indication: Relapsing-remitting multiple sclerosis
     Dosage: 300 MG AT DAY 0 AND 14, THEN 600 MG EVERY 6 MONTH?(30MG/ML)
     Route: 042
     Dates: start: 20190827, end: 20190827
  2. OCREVUS [Suspect]
     Active Substance: OCRELIZUMAB
     Dosage: 19/AUG/2019 600MG IN 500CC NS, SUBSEQUENT INFUSION ON 29/NOV/2022
     Route: 042
     Dates: start: 20220516
  3. OCREVUS [Suspect]
     Active Substance: OCRELIZUMAB
     Dosage: 600MG IN 500CC NS
     Route: 042
     Dates: start: 20230605
  4. OCREVUS [Suspect]
     Active Substance: OCRELIZUMAB
     Route: 042
  5. OCREVUS [Suspect]
     Active Substance: OCRELIZUMAB
     Route: 042
  6. OCREVUS [Suspect]
     Active Substance: OCRELIZUMAB
     Route: 042
  7. OCREVUS [Suspect]
     Active Substance: OCRELIZUMAB
     Route: 042
  8. BENADRYL [Suspect]
     Active Substance: DIPHENHYDRAMINE HYDROCHLORIDE
     Indication: Product used for unknown indication
     Route: 042

REACTIONS (14)
  - Nasopharyngitis [Recovering/Resolving]
  - Fatigue [Not Recovered/Not Resolved]
  - Infusion related reaction [Unknown]
  - Haemorrhoids [Not Recovered/Not Resolved]
  - Dizziness [Not Recovered/Not Resolved]
  - Illness [Recovered/Resolved]
  - Lethargy [Recovered/Resolved]
  - Malaise [Not Recovered/Not Resolved]
  - Infusion related reaction [Recovered/Resolved]
  - Renal pain [Not Recovered/Not Resolved]
  - Pain [Not Recovered/Not Resolved]
  - Malaise [Unknown]
  - Illness [Unknown]
  - Influenza [Not Recovered/Not Resolved]

NARRATIVE: CASE EVENT DATE: 20190903
